FAERS Safety Report 23994785 (Version 1)
Quarter: 2024Q2

REPORT INFORMATION
  Report Type: Report from Study
  Country: AT (occurrence: AT)
  Receive Date: 20240620
  Receipt Date: 20240620
  Transmission Date: 20240716
  Serious: Yes (Hospitalization, Other)
  Sender: FDA-Public Use
  Company Number: AT-TAKEDA-2021TUS069741

PATIENT
  Age: 44 Year
  Sex: Male

DRUGS (9)
  1. VELAGLUCERASE ALFA [Suspect]
     Active Substance: VELAGLUCERASE ALFA
     Indication: Gaucher^s disease
     Dosage: 4000 INTERNATIONAL UNIT, 2/WEEK
     Route: 042
  2. VELAGLUCERASE ALFA [Suspect]
     Active Substance: VELAGLUCERASE ALFA
     Dosage: 4800 INTERNATIONAL UNIT
     Route: 065
  3. VELAGLUCERASE ALFA [Suspect]
     Active Substance: VELAGLUCERASE ALFA
     Dosage: 4800 INTERNATIONAL UNIT, Q2WEEKS
     Route: 042
  4. VELAGLUCERASE ALFA [Suspect]
     Active Substance: VELAGLUCERASE ALFA
     Dosage: 4800 INTERNATIONAL UNIT, Q2WEEKS
     Route: 042
  5. VELAGLUCERASE ALFA [Suspect]
     Active Substance: VELAGLUCERASE ALFA
     Dosage: 4800 INTERNATIONAL UNIT, Q2WEEKS
     Route: 042
  6. VELAGLUCERASE ALFA [Suspect]
     Active Substance: VELAGLUCERASE ALFA
     Dosage: 4800 INTERNATIONAL UNIT, Q2WEEKS
     Route: 042
  7. VELAGLUCERASE ALFA [Suspect]
     Active Substance: VELAGLUCERASE ALFA
     Dosage: 4800 INTERNATIONAL UNIT, Q2WEEKS
     Route: 042
  8. VELAGLUCERASE ALFA [Suspect]
     Active Substance: VELAGLUCERASE ALFA
     Dosage: 4800 INTERNATIONAL UNIT, Q2WEEKS
     Route: 042
  9. VELAGLUCERASE ALFA [Suspect]
     Active Substance: VELAGLUCERASE ALFA
     Dosage: 4800 INTERNATIONAL UNIT, Q2WEEKS
     Route: 042

REACTIONS (11)
  - Fibrin D dimer increased [Not Recovered/Not Resolved]
  - Malaise [Not Recovered/Not Resolved]
  - Blood pressure increased [Not Recovered/Not Resolved]
  - Pain [Not Recovered/Not Resolved]
  - Pulmonary embolism [Recovered/Resolved]
  - Body temperature increased [Not Recovered/Not Resolved]
  - Drug ineffective [Unknown]
  - Glucosylsphingosine increased [Unknown]
  - COVID-19 [Recovered/Resolved]
  - Herpes zoster [Recovered/Resolved]
  - Gastritis [Recovering/Resolving]

NARRATIVE: CASE EVENT DATE: 20160805
